FAERS Safety Report 5016419-4 (Version None)
Quarter: 2006Q2

REPORT INFORMATION
  Report Type: 
  Country: None (occurrence: None)
  Receive Date: 20060602
  Receipt Date: 20060505
  Transmission Date: 20061013
  Serious: Yes (Hospitalization)
  Sender: FDA-Public Use
  Company Number: 2006CG00836

PATIENT
  Age: 8 Year
  Sex: Female
  Weight: 27 kg

DRUGS (2)
  1. ENTOCORT [Suspect]
     Indication: CROHN'S DISEASE
     Route: 048
     Dates: start: 20060415, end: 20060504
  2. PENTASA [Suspect]
     Indication: CROHN'S DISEASE
     Route: 048
     Dates: start: 20060415, end: 20060504

REACTIONS (1)
  - PANCREATITIS ACUTE [None]
